FAERS Safety Report 23568357 (Version 1)
Quarter: 2024Q1

REPORT INFORMATION
  Report Type: Spontaneous
  Country: US (occurrence: US)
  Receive Date: 20240227
  Receipt Date: 20240227
  Transmission Date: 20240410
  Serious: Yes (Hospitalization, Other)
  Sender: FDA-Public Use
  Company Number: US-E2BLSMVVAL-SPO/USA/24/0003012

PATIENT
  Sex: Female

DRUGS (1)
  1. ACCUTANE [Suspect]
     Active Substance: ISOTRETINOIN
     Indication: Product used for unknown indication
     Dosage: SHE WAS TAKING 2 DOSES OR 2 DAYS OF ACCUTANE

REACTIONS (4)
  - Overdose [Unknown]
  - Hepatic enzyme increased [Unknown]
  - Nausea [Unknown]
  - Abdominal pain [Unknown]
